FAERS Safety Report 7941586-X (Version None)
Quarter: 2011Q4

REPORT INFORMATION
  Report Type: 
  Country: None (occurrence: None)
  Receive Date: 20111122
  Receipt Date: 20111122
  Transmission Date: 20120403
  Serious: No
  Sender: FDA-Public Use
  Company Number: None

PATIENT
  Age: 65 Year
  Sex: Male
  Weight: 68.2 kg

DRUGS (1)
  1. TELAPREVIR [Suspect]
     Indication: HEPATITIS C
     Dosage: 750 MG TID PO
     Route: 048
     Dates: start: 20111014

REACTIONS (1)
  - RASH [None]
